FAERS Safety Report 22694746 (Version 3)
Quarter: 2023Q4

REPORT INFORMATION
  Report Type: Report from Study
  Country: CA (occurrence: CA)
  Receive Date: 20230712
  Receipt Date: 20231013
  Transmission Date: 20240110
  Serious: Yes (Hospitalization, Other)
  Sender: FDA-Public Use
  Company Number: CA-002147023-NVSC2022CA136137

PATIENT
  Age: 73 Year
  Sex: Female

DRUGS (5)
  1. ELTROMBOPAG OLAMINE [Suspect]
     Active Substance: ELTROMBOPAG OLAMINE
     Indication: Immune thrombocytopenia
     Dosage: 75 MG, QD
     Route: 048
  2. ELTROMBOPAG OLAMINE [Suspect]
     Active Substance: ELTROMBOPAG OLAMINE
     Dosage: 50 MG, QD
     Route: 048
     Dates: start: 20220607
  3. ELTROMBOPAG OLAMINE [Suspect]
     Active Substance: ELTROMBOPAG OLAMINE
     Dosage: 75 MG, QD
     Route: 065
  4. ELTROMBOPAG OLAMINE [Suspect]
     Active Substance: ELTROMBOPAG OLAMINE
     Dosage: 50 MG, QD
     Route: 065
  5. DIOVAL [Concomitant]
     Indication: Product used for unknown indication
     Dosage: UNK
     Route: 065

REACTIONS (36)
  - Malaise [Unknown]
  - Hyperhidrosis [Unknown]
  - Diarrhoea [Recovering/Resolving]
  - Fatigue [Unknown]
  - Vomiting [Unknown]
  - Dementia [Unknown]
  - Pain [Recovered/Resolved]
  - Urinary tract infection [Unknown]
  - Blood glucose increased [Unknown]
  - Peripheral swelling [Unknown]
  - Visual impairment [Unknown]
  - Petechiae [Unknown]
  - Eye pruritus [Unknown]
  - Bladder discomfort [Unknown]
  - Constipation [Unknown]
  - Weight decreased [Unknown]
  - Sleep disorder [Unknown]
  - Abdominal discomfort [Unknown]
  - Platelet count decreased [Unknown]
  - Neck pain [Unknown]
  - Headache [Not Recovered/Not Resolved]
  - Feeling abnormal [Unknown]
  - Nasopharyngitis [Unknown]
  - Hunger [Unknown]
  - Illness [Unknown]
  - Urine abnormality [Unknown]
  - Contusion [Unknown]
  - Nervousness [Unknown]
  - Alopecia [Unknown]
  - Decreased appetite [Unknown]
  - Platelet count increased [Unknown]
  - Muscle spasms [Unknown]
  - Nausea [Unknown]
  - Dizziness [Unknown]
  - Back pain [Unknown]
  - Rash papular [Unknown]

NARRATIVE: CASE EVENT DATE: 20220609
